FAERS Safety Report 12998709 (Version 1)
Quarter: 2016Q4

REPORT INFORMATION
  Report Type: Spontaneous
  Country: US (occurrence: US)
  Receive Date: 20161202
  Receipt Date: 20161202
  Transmission Date: 20170207
  Serious: Yes (Other)
  Sender: FDA-Public Use
  Company Number: None

PATIENT
  Age: 16 Year
  Sex: Male
  Weight: 60.1 kg

DRUGS (1)
  1. PROCHLORPERAZINE. [Suspect]
     Active Substance: PROCHLORPERAZINE
     Indication: NAUSEA
     Dosage: 10MG 2ML ONE TIME IV
     Route: 042
     Dates: start: 20160421

REACTIONS (3)
  - Anxiety [None]
  - Restlessness [None]
  - Psychomotor hyperactivity [None]

NARRATIVE: CASE EVENT DATE: 20160421
